FAERS Safety Report 9359665 (Version 2)
Quarter: 2013Q3

REPORT INFORMATION
  Report Type: Spontaneous
  Country: US (occurrence: US)
  Receive Date: 20130620
  Receipt Date: 20130809
  Transmission Date: 20140515
  Serious: No
  Sender: FDA-Public Use
  Company Number: US-009507513-1306USA008976

PATIENT
  Age: 26 Year
  Sex: Female
  Weight: 99.77 kg

DRUGS (1)
  1. IMPLANON [Suspect]
     Indication: CONTRACEPTION
     Dosage: ROD ONCE EVERY THREE YEARS
     Route: 059
     Dates: start: 201005

REACTIONS (2)
  - Device dislocation [Not Recovered/Not Resolved]
  - Incorrect drug administration duration [Unknown]
